FAERS Safety Report 25509121 (Version 1)
Quarter: 2025Q3

REPORT INFORMATION
  Report Type: Spontaneous
  Country: US (occurrence: US)
  Receive Date: 20250703
  Receipt Date: 20250703
  Transmission Date: 20251021
  Serious: Yes (Hospitalization, Other)
  Sender: SANOFI AVENTIS
  Company Number: US-SANOFI-02572170

PATIENT
  Age: 66 Year
  Sex: Male

DRUGS (4)
  1. LANTUS SOLOSTAR [Suspect]
     Active Substance: INSULIN GLARGINE
     Indication: Diabetes mellitus
     Dosage: 10 IU, QD
     Route: 065
     Dates: start: 20250424, end: 2025
  2. LANTUS SOLOSTAR [Suspect]
     Active Substance: INSULIN GLARGINE
     Dosage: 40 IU, HS
     Route: 065
     Dates: start: 2025
  3. HUMALOG [Suspect]
     Active Substance: INSULIN LISPRO
  4. MOUNJARO [Concomitant]
     Active Substance: TIRZEPATIDE

REACTIONS (21)
  - Syncope [Unknown]
  - Loss of consciousness [Unknown]
  - Cerebrovascular accident [Unknown]
  - Pancreatitis [Unknown]
  - Impaired gastric emptying [Unknown]
  - Seizure [Unknown]
  - Vomiting [Unknown]
  - Headache [Unknown]
  - Blood magnesium decreased [Unknown]
  - Lipase increased [Unknown]
  - Abdominal pain [Unknown]
  - Hepatic steatosis [Unknown]
  - Cold sweat [Unknown]
  - Nausea [Unknown]
  - Tremor [Unknown]
  - Chills [Unknown]
  - Hyperhidrosis [Unknown]
  - Pallor [Unknown]
  - Blood glucose increased [Unknown]
  - Injection site bruising [Unknown]
  - Injection site pain [Unknown]

NARRATIVE: CASE EVENT DATE: 20250101
